FAERS Safety Report 7516167-2 (Version None)
Quarter: 2011Q2

REPORT INFORMATION
  Report Type: 
  Country: None (occurrence: None)
  Receive Date: 20110601
  Receipt Date: 20110523
  Transmission Date: 20111010
  Serious: Yes (Hospitalization)
  Sender: FDA-Public Use
  Company Number: JP-ASTRAZENECA-2011SE31045

PATIENT
  Age: 63 Year
  Sex: Male
  Weight: 50 kg

DRUGS (27)
  1. RADEN [Concomitant]
     Route: 048
     Dates: start: 20110520
  2. ROHYPNOL [Concomitant]
     Route: 048
     Dates: start: 20110520
  3. ALMYLAR [Concomitant]
     Indication: HYPERTENSION
     Route: 048
     Dates: end: 20110518
  4. ARTANE [Concomitant]
     Indication: SCHIZOPHRENIA
     Route: 048
     Dates: end: 20110518
  5. ABILIFY [Concomitant]
     Indication: SCHIZOPHRENIA
     Route: 048
     Dates: end: 20110518
  6. PURSENNID [Concomitant]
     Route: 048
     Dates: start: 20110520
  7. UBRETID [Concomitant]
     Route: 048
     Dates: start: 20110520
  8. CRESTOR [Suspect]
     Indication: HYPERLIPIDAEMIA
     Route: 048
     Dates: end: 20110518
  9. RADEN [Concomitant]
     Indication: GASTRIC ULCER
     Route: 048
     Dates: end: 20110518
  10. MAGNESIUM SULFATE [Concomitant]
     Indication: CONSTIPATION
     Route: 048
     Dates: end: 20110518
  11. LONASEN [Concomitant]
     Route: 048
     Dates: start: 20110520
  12. HIRNAMIN [Concomitant]
     Route: 048
     Dates: start: 20110520
  13. ABILIFY [Concomitant]
     Route: 048
     Dates: start: 20110520
  14. ROHYPNOL [Concomitant]
     Indication: SCHIZOPHRENIA
     Route: 048
     Dates: end: 20110518
  15. MAGNESIUM SULFATE [Concomitant]
     Route: 048
     Dates: start: 20110520
  16. DEPAKENE [Concomitant]
     Route: 048
     Dates: start: 20110520
  17. VEGETAMIN-A [Concomitant]
     Route: 048
     Dates: start: 20110520
  18. INHIROCK [Concomitant]
     Route: 048
     Dates: start: 20110520
  19. PURSENNID [Concomitant]
     Indication: SCHIZOPHRENIA
     Route: 048
     Dates: end: 20110518
  20. UBRETID [Concomitant]
     Indication: BENIGN PROSTATIC HYPERPLASIA
     Route: 048
     Dates: end: 20110518
  21. INHIROCK [Concomitant]
     Indication: HYPERTENSION
     Route: 048
     Dates: end: 20110518
  22. ALMYLAR [Concomitant]
     Route: 048
     Dates: start: 20110520
  23. ARTANE [Concomitant]
     Route: 048
     Dates: start: 20110520
  24. VEGETAMIN-A [Concomitant]
     Indication: SCHIZOPHRENIA
     Route: 048
     Dates: end: 20110518
  25. DEPAKENE [Concomitant]
     Indication: SCHIZOPHRENIA
     Route: 048
     Dates: end: 20110518
  26. LONASEN [Concomitant]
     Indication: SCHIZOPHRENIA
     Route: 048
     Dates: end: 20110518
  27. HIRNAMIN [Concomitant]
     Indication: SCHIZOPHRENIA
     Route: 048
     Dates: end: 20110518

REACTIONS (3)
  - FALL [None]
  - DIZZINESS [None]
  - RHABDOMYOLYSIS [None]
